FAERS Safety Report 19806551 (Version 7)
Quarter: 2022Q1

REPORT INFORMATION
  Report Type: Spontaneous
  Country: US (occurrence: US)
  Receive Date: 20210909
  Receipt Date: 20220322
  Transmission Date: 20220423
  Serious: Yes (Hospitalization, Other)
  Sender: FDA-Public Use
  Company Number: US-GLAXOSMITHKLINE-US2021AMR189637

PATIENT
  Sex: Female
  Weight: 61.678 kg

DRUGS (3)
  1. ZEJULA [Suspect]
     Active Substance: NIRAPARIB
     Indication: Ovarian cancer
     Dosage: 200 MG, QD
     Dates: start: 20210831
  2. ZEJULA [Suspect]
     Active Substance: NIRAPARIB
     Dosage: 100 MG, QD
  3. ZEJULA [Suspect]
     Active Substance: NIRAPARIB
     Dosage: 200 MG, QD
     Dates: end: 202110

REACTIONS (14)
  - Abdominal discomfort [Not Recovered/Not Resolved]
  - Abdominal distension [Unknown]
  - Constipation [Unknown]
  - Vomiting [Unknown]
  - Small intestinal obstruction [Unknown]
  - Insomnia [Recovered/Resolved]
  - Dry eye [Unknown]
  - Vision blurred [Not Recovered/Not Resolved]
  - Anaemia [Unknown]
  - Dyspnoea exertional [Unknown]
  - Fatigue [Not Recovered/Not Resolved]
  - Weight increased [Unknown]
  - Visual impairment [Unknown]
  - Hospice care [Unknown]
